FAERS Safety Report 7296767-8 (Version None)
Quarter: 2011Q1

REPORT INFORMATION
  Report Type: 
  Country: None (occurrence: None)
  Receive Date: 20110216
  Receipt Date: 20110209
  Transmission Date: 20110831
  Serious: Yes (Disabling)
  Sender: FDA-Public Use
  Company Number: B0590568A

PATIENT
  Sex: Female
  Weight: 50 kg

DRUGS (3)
  1. XELODA [Suspect]
     Indication: BREAST CANCER
     Dosage: 300MG PER DAY
     Route: 048
     Dates: start: 20090722, end: 20090725
  2. TYKERB [Suspect]
     Dosage: 1250MG PER DAY
     Route: 048
     Dates: start: 20090722
  3. MUCOSTA [Concomitant]
     Indication: GASTRITIS PROPHYLAXIS
     Route: 048
     Dates: start: 20090916, end: 20090926

REACTIONS (1)
  - URTICARIA [None]
